FAERS Safety Report 4983767-3 (Version None)
Quarter: 2006Q1

REPORT INFORMATION
  Report Type: 
  Country: None (occurrence: None)
  Receive Date: 20060302
  Receipt Date: 20051019
  Transmission Date: 20060701
  Serious: No
  Sender: FDA-Public Use
  Company Number: 216993

PATIENT
  Age: 10 Year
  Sex: Female
  Weight: 29.3 kg

DRUGS (2)
  1. NUTROPIN [Suspect]
     Indication: RENAL FAILURE CHRONIC
     Dosage: 1.5 MG, SUBCUTANEOUS
     Route: 058
     Dates: start: 20020220, end: 20050811
  2. DIALYSIS (DIALYSIS TREATMENTS AND DEVICES) [Concomitant]

REACTIONS (1)
  - GAIT DISTURBANCE [None]
